FAERS Safety Report 24777432 (Version 1)
Quarter: 2024Q4

REPORT INFORMATION
  Report Type: Spontaneous
  Country: FR (occurrence: FR)
  Receive Date: 20241226
  Receipt Date: 20241226
  Transmission Date: 20250115
  Serious: Yes (Other)
  Sender: PFIZER
  Company Number: FR-PFIZER INC-PV202400156882

PATIENT
  Age: 85 Year
  Sex: Female

DRUGS (1)
  1. PALBOCICLIB [Suspect]
     Active Substance: PALBOCICLIB
     Indication: Breast cancer female
     Dosage: UNK

REACTIONS (14)
  - Cataract [Unknown]
  - Fatigue [Unknown]
  - Feeling cold [Unknown]
  - Constipation [Unknown]
  - Diarrhoea [Recovered/Resolved]
  - Chills [Unknown]
  - Oedema peripheral [Unknown]
  - Dry mouth [Unknown]
  - Thirst [Unknown]
  - Vision blurred [Unknown]
  - Pain in extremity [Unknown]
  - Toothache [Unknown]
  - Epistaxis [Recovering/Resolving]
  - Haemoptysis [Recovering/Resolving]
